FAERS Safety Report 7590564-1 (Version None)
Quarter: 2011Q3

REPORT INFORMATION
  Report Type: 
  Country: None (occurrence: None)
  Receive Date: 20110705
  Receipt Date: 20110623
  Transmission Date: 20111222
  Serious: Yes (Hospitalization)
  Sender: FDA-Public Use
  Company Number: US-ELI_LILLY_AND_COMPANY-US200911006227

PATIENT
  Sex: Female

DRUGS (5)
  1. CITRATE [Concomitant]
  2. FORTEO [Suspect]
     Dosage: 20 UG, DAILY (1/D)
     Dates: start: 20100101, end: 20110519
  3. VITAMIN D [Concomitant]
  4. FORTEO [Suspect]
     Indication: OSTEOPOROSIS
     Dosage: 20 UG, DAILY (1/D)
     Dates: start: 20091109, end: 20091203
  5. FORTEO [Suspect]
     Dosage: 20 UG, QD
     Dates: start: 20110623

REACTIONS (9)
  - NASOPHARYNGITIS [None]
  - MALAISE [None]
  - INJECTION SITE PAIN [None]
  - MENTAL IMPAIRMENT [None]
  - FEELING ABNORMAL [None]
  - THYROID NEOPLASM [None]
  - SINUSITIS [None]
  - CONSTIPATION [None]
  - MEDICATION ERROR [None]
